FAERS Safety Report 8996119 (Version 1)
Quarter: 2013Q1

REPORT INFORMATION
  Report Type: Spontaneous
  Country: US (occurrence: US)
  Receive Date: 20130103
  Receipt Date: 20130103
  Transmission Date: 20140127
  Serious: Yes (Hospitalization)
  Sender: FDA-Public Use
  Company Number: US-B.I. PHARMACEUTICALS,INC./RIDGEFIELD-2012-BI-04503BP

PATIENT
  Sex: Female
  Weight: 77 kg

DRUGS (7)
  1. MIRAPEX [Suspect]
     Indication: PAIN
     Dosage: 0.25 MG
  2. ALEVE [Suspect]
     Indication: PAIN
     Dosage: 200 MG
  3. AMITRIPTYLINE [Suspect]
     Indication: PAIN
     Dosage: 25 MG
  4. CLONAZEPAM [Suspect]
     Indication: PAIN
     Dosage: 2 MG
  5. TRAMADOL [Suspect]
     Indication: PAIN
     Dosage: 50 MG
  6. LEVEMIR [Concomitant]
     Indication: DIABETES MELLITUS
  7. NOVOLOG [Concomitant]
     Indication: DIABETES MELLITUS

REACTIONS (4)
  - Constipation [Not Recovered/Not Resolved]
  - Eye abscess [Unknown]
  - Subcutaneous abscess [Unknown]
  - VIIth nerve paralysis [Unknown]
